FAERS Safety Report 14584727 (Version 7)
Quarter: 2018Q4

REPORT INFORMATION
  Report Type: Report from Study
  Country: None (occurrence: US)
  Receive Date: 20180301
  Receipt Date: 20181119
  Transmission Date: 20190204
  Serious: Yes (Other)
  Sender: FDA-Public Use
  Company Number: US-ABBVIE-17K-163-1864258-00

PATIENT
  Age: 74 Year
  Sex: Female
  Weight: 57.66 kg

DRUGS (7)
  1. ALEVE [Concomitant]
     Active Substance: NAPROXEN SODIUM
     Indication: PRODUCT USED FOR UNKNOWN INDICATION
  2. LUMIGAN [Concomitant]
     Active Substance: BIMATOPROST
     Indication: GLAUCOMA
  3. HUMIRA [Suspect]
     Active Substance: ADALIMUMAB
     Indication: COLITIS ULCERATIVE
  4. ABILIFY [Concomitant]
     Active Substance: ARIPIPRAZOLE
     Indication: DEPRESSION
  5. HUMIRA [Suspect]
     Active Substance: ADALIMUMAB
     Indication: CROHN^S DISEASE
     Route: 058
     Dates: start: 201503
  6. SERTRALINE [Concomitant]
     Active Substance: SERTRALINE HYDROCHLORIDE
     Indication: DEPRESSION
  7. ABILIFY [Concomitant]
     Active Substance: ARIPIPRAZOLE
     Indication: SLEEP DISORDER THERAPY

REACTIONS (36)
  - Hypertonic bladder [Unknown]
  - Lip haemorrhage [Recovered/Resolved]
  - Dermatitis acneiform [Recovered/Resolved]
  - Product prescribing error [Recovered/Resolved]
  - Dental caries [Unknown]
  - Stress [Unknown]
  - Anxiety [Unknown]
  - Ear pain [Unknown]
  - Dysstasia [Unknown]
  - Vertigo positional [Unknown]
  - Impaired healing [Unknown]
  - Feeding disorder [Recovered/Resolved]
  - Cystitis [Recovering/Resolving]
  - Musculoskeletal pain [Recovered/Resolved]
  - Osteoarthritis [Unknown]
  - Skin laceration [Unknown]
  - Urinary incontinence [Recovering/Resolving]
  - Psychomotor hyperactivity [Unknown]
  - Nasopharyngitis [Unknown]
  - Psoriasis [Unknown]
  - Joint range of motion decreased [Recovered/Resolved]
  - Decreased appetite [Recovered/Resolved]
  - Gait disturbance [Unknown]
  - Nausea [Recovered/Resolved]
  - Influenza [Unknown]
  - Back pain [Not Recovered/Not Resolved]
  - Crohn^s disease [Recovered/Resolved]
  - Crohn^s disease [Recovered/Resolved]
  - Immunodeficiency [Unknown]
  - Dizziness postural [Unknown]
  - Stress [Recovered/Resolved]
  - Rotator cuff syndrome [Unknown]
  - Dermatitis acneiform [Unknown]
  - Paranasal sinus hypersecretion [Unknown]
  - Lip dry [Unknown]
  - Crohn^s disease [Unknown]

NARRATIVE: CASE EVENT DATE: 2016
